FAERS Safety Report 6824308-5 (Version None)
Quarter: 2010Q3

REPORT INFORMATION
  Report Type: 
  Country: None (occurrence: None)
  Receive Date: 20100708
  Receipt Date: 20061017
  Transmission Date: 20110219
  Serious: No
  Sender: FDA-Public Use
  Company Number: US-PFIZER INC-2006128578

PATIENT
  Sex: Female
  Weight: 80.74 kg

DRUGS (6)
  1. CHANTIX [Suspect]
     Indication: SMOKING CESSATION THERAPY
     Dates: start: 20061001, end: 20061001
  2. CELEBREX [Concomitant]
  3. GLUCOSAMINE [Concomitant]
  4. VITAMINS [Concomitant]
  5. ACETYLSALICYLIC ACID [Concomitant]
  6. NORPRAMIN [Concomitant]
     Indication: DEPRESSION

REACTIONS (2)
  - NAUSEA [None]
  - SOMNOLENCE [None]
